FAERS Safety Report 24906397 (Version 1)
Quarter: 2025Q1

REPORT INFORMATION
  Report Type: Spontaneous
  Country: GB (occurrence: GB)
  Receive Date: 20250130
  Receipt Date: 20250130
  Transmission Date: 20250409
  Serious: Yes (Other)
  Sender: MERCK
  Company Number: None

PATIENT
  Age: 63 Year
  Sex: Female
  Weight: 111 kg

DRUGS (8)
  1. SUGAMMADEX SODIUM [Suspect]
     Active Substance: SUGAMMADEX SODIUM
     Dates: start: 20250114, end: 20250114
  2. ROCURONIUM BROMIDE [Suspect]
     Active Substance: ROCURONIUM BROMIDE
     Dates: start: 20250114, end: 20250114
  3. OMNIPAQUE [Suspect]
     Active Substance: IOHEXOL
     Dates: start: 20250114, end: 20250114
  4. ALTEPLASE [Suspect]
     Active Substance: ALTEPLASE
     Dates: start: 20250114, end: 20250114
  5. METARAMINOL [Suspect]
     Active Substance: METARAMINOL
     Route: 042
  6. DEXAMETHASONE [Concomitant]
     Active Substance: DEXAMETHASONE
  7. ONDANSETRON [Concomitant]
     Active Substance: ONDANSETRON
  8. EPHEDRINE [Concomitant]
     Active Substance: EPHEDRINE

REACTIONS (3)
  - Angioedema [Recovered/Resolved]
  - Bronchospasm [Recovered/Resolved]
  - Hypotension [Unknown]

NARRATIVE: CASE EVENT DATE: 20250114
